FAERS Safety Report 12425446 (Version 1)
Quarter: 2016Q2

REPORT INFORMATION
  Report Type: Spontaneous
  Country: GB (occurrence: GB)
  Receive Date: 20160601
  Receipt Date: 20160601
  Transmission Date: 20160815
  Serious: Yes (Other)
  Sender: FDA-Public Use
  Company Number: GB-BAYER-2016-105348

PATIENT
  Age: 39 Year
  Sex: Female
  Weight: 83 kg

DRUGS (1)
  1. ASPRO CLEAR [Suspect]
     Active Substance: ASPIRIN
     Dosage: UNK
     Dates: start: 20160519

REACTIONS (4)
  - Rash [Recovered/Resolved]
  - Lip swelling [Recovered/Resolved]
  - Abdominal pain [Unknown]
  - Dyspnoea [Unknown]

NARRATIVE: CASE EVENT DATE: 20160519
